FAERS Safety Report 9941508 (Version 1)
Quarter: 2014Q1

REPORT INFORMATION
  Report Type: Report from Study
  Country: US (occurrence: US)
  Receive Date: 20140303
  Receipt Date: 20140303
  Transmission Date: 20141002
  Serious: No
  Sender: FDA-Public Use
  Company Number: US-ABBVIE-13P-163-1042280-00

PATIENT
  Age: 52 Year
  Sex: Male

DRUGS (2)
  1. HUMIRA [Suspect]
     Indication: CROHN^S DISEASE
     Dosage: 4 PENS ON DAY 1
     Route: 058
     Dates: start: 201301, end: 201301
  2. HUMIRA [Suspect]
     Dosage: 2 PENS ON DAY 15
     Route: 058

REACTIONS (1)
  - Injection site bruising [Unknown]
